FAERS Safety Report 19782892 (Version 2)
Quarter: 2022Q1

REPORT INFORMATION
  Report Type: Spontaneous
  Country: AU (occurrence: AU)
  Receive Date: 20210902
  Receipt Date: 20220317
  Transmission Date: 20220423
  Serious: Yes (Other)
  Sender: FDA-Public Use
  Company Number: AU-ALLERGAN-2130494US

PATIENT
  Sex: Female

DRUGS (5)
  1. ALPHAGAN P [Suspect]
     Active Substance: BRIMONIDINE TARTRATE
     Indication: Open angle glaucoma
     Dosage: 1 DF, BID
  2. COSOPT [Suspect]
     Active Substance: DORZOLAMIDE HYDROCHLORIDE\TIMOLOL MALEATE
     Indication: Vision blurred
  3. COSOPT [Suspect]
     Active Substance: DORZOLAMIDE HYDROCHLORIDE\TIMOLOL MALEATE
     Indication: Diplopia
  4. TIMOLOL MALEATE [Concomitant]
     Active Substance: TIMOLOL MALEATE
     Dosage: 1 DF, QD
  5. PILOCARPINE [Concomitant]
     Active Substance: PILOCARPINE
     Dosage: 1 DF, BID

REACTIONS (11)
  - Trabeculoplasty [Unknown]
  - Iridotomy [Unknown]
  - Intraocular lens implant [Unknown]
  - Eye disorder [Unknown]
  - Intraocular pressure test abnormal [Unknown]
  - Diplopia [Unknown]
  - Meibomian gland dysfunction [Unknown]
  - Ocular surface disease [Unknown]
  - Staphyloma [Unknown]
  - Drug intolerance [Unknown]
  - Cataract [Unknown]

NARRATIVE: CASE EVENT DATE: 20080101
